FAERS Safety Report 20330833 (Version 1)
Quarter: 2022Q1

REPORT INFORMATION
  Report Type: Spontaneous
  Country: US (occurrence: US)
  Receive Date: 20220113
  Receipt Date: 20220113
  Transmission Date: 20220423
  Serious: Yes (Hospitalization, Other)
  Sender: FDA-Public Use
  Company Number: US-MYLANLABS-2015M1010056

PATIENT

DRUGS (4)
  1. CYSTAGON [Suspect]
     Active Substance: CYSTEAMINE BITARTRATE
     Indication: Congenital cystic kidney disease
     Dosage: 450 MILLIGRAM, 3 CAPSULES AND 600 MILLIGRAM, 4 CAPSULES  EVERY 6 HOURS
     Route: 048
     Dates: start: 20131012
  2. CYSTAGON [Suspect]
     Active Substance: CYSTEAMINE BITARTRATE
     Dosage: 300 MILLIGRAM, QID
     Route: 048
     Dates: start: 20131211
  3. CYSTAGON [Suspect]
     Active Substance: CYSTEAMINE BITARTRATE
     Dosage: 150 MILLIGRAM, QID
     Route: 065
  4. CYSTAGON [Suspect]
     Active Substance: CYSTEAMINE BITARTRATE
     Dosage: 150 MILLIGRAM, QID
     Route: 065
     Dates: start: 20210511

REACTIONS (7)
  - Haemorrhage [Unknown]
  - Gastric ulcer [Unknown]
  - Visual impairment [Unknown]
  - Weight abnormal [Unknown]
  - Nausea [Unknown]
  - Chills [Not Recovered/Not Resolved]
  - Pyrexia [Not Recovered/Not Resolved]

NARRATIVE: CASE EVENT DATE: 20150320
